FAERS Safety Report 24246924 (Version 2)
Quarter: 2024Q3

REPORT INFORMATION
  Report Type: Spontaneous
  Country: US (occurrence: US)
  Receive Date: 20240826
  Receipt Date: 20240926
  Transmission Date: 20241017
  Serious: Yes (Other)
  Sender: AUROBINDO
  Company Number: US-AUROBINDO-AUR-APL-2024-040755

PATIENT
  Age: 41 Year
  Sex: Male

DRUGS (2)
  1. NITROGLYCERIN [Suspect]
     Active Substance: NITROGLYCERIN
     Indication: Acute myocardial infarction
     Dosage: 0.4 MILLIGRAM
     Route: 060
  2. ASPIRIN [Suspect]
     Active Substance: ASPIRIN
     Indication: Acute myocardial infarction
     Dosage: 324 MILLIGRAM
     Route: 065

REACTIONS (1)
  - Drug ineffective [Unknown]
